FAERS Safety Report 6648020-0 (Version None)
Quarter: 2010Q1

REPORT INFORMATION
  Report Type: 
  Country: None (occurrence: None)
  Receive Date: 20100324
  Receipt Date: 20100318
  Transmission Date: 20100710
  Serious: Yes (Hospitalization, Disabling, Other)
  Sender: FDA-Public Use
  Company Number: US-ELI_LILLY_AND_COMPANY-US201003005264

PATIENT
  Sex: Female

DRUGS (3)
  1. HUMULIN N [Suspect]
     Dosage: UNK, AS NEEDED
     Dates: start: 20100318
  2. HUMULIN N [Suspect]
     Dosage: UNK, UNK
     Dates: start: 19950101, end: 20100317
  3. METFORMIN HCL [Concomitant]

REACTIONS (15)
  - ACCIDENT [None]
  - ANGER [None]
  - ARTHRALGIA [None]
  - BLOOD GLUCOSE INCREASED [None]
  - BREAST CANCER [None]
  - COMA [None]
  - CONFUSIONAL STATE [None]
  - DIZZINESS [None]
  - DRUG DISPENSING ERROR [None]
  - HEADACHE [None]
  - HERNIA [None]
  - INCORRECT DRUG DOSAGE FORM ADMINISTERED [None]
  - JOINT INJURY [None]
  - MALAISE [None]
  - SKIN CANCER [None]
